FAERS Safety Report 13174209 (Version 2)
Quarter: 2017Q1

REPORT INFORMATION
  Report Type: Report from Study
  Country: None (occurrence: BR)
  Receive Date: 20170131
  Receipt Date: 20170214
  Transmission Date: 20170428
  Serious: No
  Sender: FDA-Public Use
  Company Number: BR-ABBVIE-17K-020-1849408-00

PATIENT
  Age: 41 Year
  Sex: Female
  Weight: 68 kg

DRUGS (6)
  1. HUMIRA [Suspect]
     Active Substance: ADALIMUMAB
     Indication: RHEUMATOID ARTHRITIS
     Route: 058
     Dates: start: 20121215, end: 2016
  2. METHOTREXATE. [Suspect]
     Active Substance: METHOTREXATE
     Indication: ARTHRITIS
     Route: 048
  3. METHOTREXATE. [Suspect]
     Active Substance: METHOTREXATE
     Route: 048
     Dates: start: 201609
  4. VITAMIN D [Suspect]
     Active Substance: CHOLECALCIFEROL
     Indication: PRODUCT USED FOR UNKNOWN INDICATION
     Route: 065
  5. METHOTREXATE. [Suspect]
     Active Substance: METHOTREXATE
     Route: 048
  6. HUMIRA [Suspect]
     Active Substance: ADALIMUMAB
     Route: 058
     Dates: start: 2016, end: 20161226

REACTIONS (26)
  - Lymphadenopathy [Not Recovered/Not Resolved]
  - Diabetes mellitus [Recovering/Resolving]
  - Nephrolithiasis [Recovered/Resolved]
  - Dysstasia [Recovering/Resolving]
  - Renal colic [Recovered/Resolved]
  - Weight decreased [Unknown]
  - Mobility decreased [Recovering/Resolving]
  - Immunodeficiency [Not Recovered/Not Resolved]
  - Weight increased [Recovering/Resolving]
  - Hepatitis [Unknown]
  - Arthralgia [Recovering/Resolving]
  - Arthropathy [Recovered/Resolved]
  - Influenza [Recovering/Resolving]
  - Tooth infection [Recovered/Resolved]
  - Purulence [Recovered/Resolved]
  - Joint stiffness [Recovering/Resolving]
  - Musculoskeletal stiffness [Not Recovered/Not Resolved]
  - Arthralgia [Not Recovered/Not Resolved]
  - Hepatic infection [Unknown]
  - Drug effect decreased [Not Recovered/Not Resolved]
  - Musculoskeletal stiffness [Recovering/Resolving]
  - Rash macular [Recovered/Resolved]
  - Malaise [Recovering/Resolving]
  - Chills [Not Recovered/Not Resolved]
  - Neck pain [Not Recovered/Not Resolved]
  - Spinal pain [Not Recovered/Not Resolved]

NARRATIVE: CASE EVENT DATE: 20121215
